APPROVED DRUG PRODUCT: OCTREOTIDE ACETATE (PRESERVATIVE FREE)
Active Ingredient: OCTREOTIDE ACETATE
Strength: EQ 0.1MG BASE/ML
Dosage Form/Route: INJECTABLE;INJECTION
Application: A079198 | Product #002 | TE Code: AP
Applicant: MYLAN INSTITUTIONAL LLC
Approved: Feb 10, 2011 | RLD: No | RS: No | Type: RX